FAERS Safety Report 17502055 (Version 14)
Quarter: 2022Q3

REPORT INFORMATION
  Report Type: Report from Study
  Country: PH (occurrence: PH)
  Receive Date: 20200305
  Receipt Date: 20220902
  Transmission Date: 20221027
  Serious: Yes (Hospitalization, Other)
  Sender: FDA-Public Use
  Company Number: NVSC2020PH058517

PATIENT
  Age: 65 Year
  Sex: Female
  Weight: 63.4 kg

DRUGS (16)
  1. CANAKINUMAB [Suspect]
     Active Substance: CANAKINUMAB
     Indication: Non-small cell lung cancer
     Dosage: UNK
     Route: 058
     Dates: start: 20200108
  2. PEMBROLIZUMAB [Suspect]
     Active Substance: PEMBROLIZUMAB
     Indication: Non-small cell lung cancer
     Dosage: 200 MG, Q3W
     Route: 042
     Dates: start: 20200108
  3. PEMETREXED DISODIUM [Suspect]
     Active Substance: PEMETREXED DISODIUM
     Indication: Non-small cell lung cancer
     Dosage: 875 MG, Q3W
     Route: 042
     Dates: start: 20200108
  4. ANORO ELLIPTA [Concomitant]
     Active Substance: UMECLIDINIUM BROMIDE\VILANTEROL TRIFENATATE
     Indication: Cough
     Dosage: UNK
     Route: 065
     Dates: start: 20200120
  5. SYMBICORT [Concomitant]
     Active Substance: BUDESONIDE\FORMOTEROL FUMARATE DIHYDRATE
     Indication: Cough
     Dosage: UNK
     Route: 065
     Dates: start: 201909
  6. ZYKAST [Concomitant]
     Indication: Cough
     Dosage: UNK
     Route: 065
     Dates: start: 20200120
  7. MONTELUKAST [Concomitant]
     Active Substance: MONTELUKAST SODIUM
     Indication: Cough
     Dosage: UNK
     Route: 065
     Dates: start: 201909
  8. TRAMADOL [Concomitant]
     Active Substance: TRAMADOL
     Indication: Abdominal pain
     Dosage: UNK
     Route: 065
     Dates: start: 20200120
  9. FLUIMUCIL [Concomitant]
     Active Substance: ACETYLCYSTEINE
     Indication: Non-small cell lung cancer
     Dosage: UNK
     Route: 065
     Dates: start: 20200226, end: 20200302
  10. DEXAMETHASONE [Concomitant]
     Active Substance: DEXAMETHASONE
     Indication: Premedication
     Dosage: UNK
     Route: 065
     Dates: start: 20200108
  11. VITAMIN B12 [Concomitant]
     Active Substance: CYANOCOBALAMIN
     Indication: Premedication
     Dosage: UNK
     Route: 065
     Dates: start: 20200102
  12. RAMOSETRON HYDROCHLORIDE [Concomitant]
     Active Substance: RAMOSETRON HYDROCHLORIDE
     Indication: Premedication
     Dosage: UNK
     Route: 065
     Dates: start: 20200108, end: 20200527
  13. FOLIC ACID [Concomitant]
     Active Substance: FOLIC ACID
     Indication: Premedication
     Dosage: 500 MG, QD
     Route: 065
     Dates: start: 20200107
  14. METOCLOPRAMIDE [Concomitant]
     Active Substance: METOCLOPRAMIDE
     Indication: Nausea
     Dosage: UNK
     Route: 065
     Dates: start: 20200109
  15. OMEPRAZOLE [Concomitant]
     Active Substance: OMEPRAZOLE
     Indication: Diarrhoea
     Dosage: UNK
     Route: 065
     Dates: start: 20200119
  16. FILGRASTIM [Concomitant]
     Active Substance: FILGRASTIM
     Indication: Neutrophil count abnormal
     Dosage: 300 UG SQ
     Route: 058
     Dates: start: 20200228

REACTIONS (2)
  - Stomatitis [Recovered/Resolved]
  - Anaemia [Recovered/Resolved]

NARRATIVE: CASE EVENT DATE: 20200226
